FAERS Safety Report 4580728-3 (Version None)
Quarter: 2005Q1

REPORT INFORMATION
  Report Type: 
  Country: None (occurrence: None)
  Receive Date: 20050214
  Receipt Date: 20040519
  Transmission Date: 20050727
  Serious: No
  Sender: FDA-Public Use
  Company Number: US-GLAXOSMITHKLINE-A0511477A

PATIENT
  Age: 27 Year
  Sex: Female

DRUGS (3)
  1. LAMICTAL [Suspect]
     Indication: BIPOLAR DISORDER
     Dosage: 37.5MG PER DAY
     Route: 048
  2. ATENOLOL [Concomitant]
  3. ZYRTEC [Concomitant]

REACTIONS (2)
  - HOT FLUSH [None]
  - MENSTRUATION IRREGULAR [None]
